FAERS Safety Report 20109366 (Version 1)
Quarter: 2021Q4

REPORT INFORMATION
  Report Type: Spontaneous
  Country: US (occurrence: None)
  Receive Date: 20211124
  Receipt Date: 20211124
  Transmission Date: 20220303
  Serious: Yes (Death)
  Sender: FDA-Public Use
  Company Number: None

PATIENT
  Age: 83 Year
  Sex: Female

DRUGS (8)
  1. CINACALCET [Suspect]
     Active Substance: CINACALCET
     Indication: Hypercalcaemia
     Dosage: FREQUENCY : DAILY;?
     Route: 048
     Dates: start: 20210602
  2. METOPROLOL SUCCINATE [Concomitant]
     Active Substance: METOPROLOL SUCCINATE
  3. DEXAMETHASONE [Concomitant]
     Active Substance: DEXAMETHASONE
  4. PREDNISONE [Concomitant]
     Active Substance: PREDNISONE
  5. CLINDAMYCIN [Concomitant]
     Active Substance: CLINDAMYCIN
  6. AMOXICILLIN [Concomitant]
     Active Substance: AMOXICILLIN
  7. FENOFIBRATE [Concomitant]
     Active Substance: FENOFIBRATE
  8. Armour Thyro [Concomitant]

REACTIONS (1)
  - Death [None]
